FAERS Safety Report 18963176 (Version 1)
Quarter: 2021Q1

REPORT INFORMATION
  Report Type: Spontaneous
  Country: US (occurrence: US)
  Receive Date: 20210303
  Receipt Date: 20210303
  Transmission Date: 20210420
  Serious: Yes (Hospitalization)
  Sender: FDA-Public Use
  Company Number: None

PATIENT
  Age: 66 Year
  Sex: Female

DRUGS (1)
  1. CAPECITABINE. [Suspect]
     Active Substance: CAPECITABINE
     Indication: HEPATOBILIARY CANCER
     Dosage: ?          OTHER FREQUENCY:QAM, 1000MG QPM;?
     Route: 048
     Dates: start: 20200702

REACTIONS (2)
  - Therapy interrupted [None]
  - Biliary obstruction [None]

NARRATIVE: CASE EVENT DATE: 20210220
